FAERS Safety Report 6341014-4 (Version None)
Quarter: 2009Q3

REPORT INFORMATION
  Report Type: 
  Country: None (occurrence: None)
  Receive Date: 20090904
  Receipt Date: 20090901
  Transmission Date: 20100115
  Serious: Yes (Other)
  Sender: FDA-Public Use
  Company Number: A0805368A

PATIENT
  Age: 62 Year
  Sex: Female

DRUGS (1)
  1. AVANDAMET [Suspect]
     Indication: DIABETES MELLITUS
     Dosage: 2TAB PER DAY
     Route: 048
     Dates: start: 20080701, end: 20090820

REACTIONS (4)
  - CATARACT [None]
  - CATARACT OPERATION [None]
  - MACULAR OEDEMA [None]
  - POST PROCEDURAL COMPLICATION [None]
